FAERS Safety Report 9323263 (Version 2)
Quarter: 2013Q3

REPORT INFORMATION
  Report Type: Spontaneous
  Country: US (occurrence: US)
  Receive Date: 20130603
  Receipt Date: 20130718
  Transmission Date: 20140515
  Serious: No
  Sender: FDA-Public Use
  Company Number: US-009507513-1305USA016873

PATIENT
  Age: 54 Year
  Sex: Female

DRUGS (2)
  1. AZASITE [Suspect]
     Dosage: 1 DROP IN EACH EYE TWICE A DAY
     Route: 047
  2. AZASITE [Suspect]
     Dosage: 2 GTT, QD
     Route: 047

REACTIONS (4)
  - Conjunctivitis viral [Recovered/Resolved]
  - Drug effect incomplete [Unknown]
  - Drug dose omission [Unknown]
  - Product quality issue [Unknown]
